FAERS Safety Report 9414664 (Version 1)
Quarter: 2013Q3

REPORT INFORMATION
  Report Type: Spontaneous
  Country: US (occurrence: None)
  Receive Date: 20130717
  Receipt Date: 20130717
  Transmission Date: 20140515
  Serious: Yes (Life-Threatening, Hospitalization)
  Sender: FDA-Public Use
  Company Number: 2013P1011549

PATIENT
  Age: 14 Year
  Sex: Female
  Weight: 47 kg

DRUGS (12)
  1. MORPHINE [Suspect]
     Indication: OROPHARYNGEAL PAIN
  2. MORPHINE [Suspect]
     Indication: NECK PAIN
  3. PHENOBARBITAL [Suspect]
     Indication: CONVULSION
     Route: 048
     Dates: start: 20130501
  4. ATIVAN [Suspect]
     Indication: ANXIETY
     Route: 048
  5. KLONOPIN [Concomitant]
  6. VIMPAT [Concomitant]
  7. CELEXA [Concomitant]
  8. VERSED [Concomitant]
  9. BENADYRL [Concomitant]
  10. ALLEGRA [Concomitant]
  11. HYDROCORTISONE [Concomitant]
  12. TRIEPTAL [Concomitant]

REACTIONS (16)
  - Screaming [None]
  - Convulsion [None]
  - Depression [None]
  - Self-injurious ideation [None]
  - Self injurious behaviour [None]
  - Folliculitis [None]
  - Pharyngitis [None]
  - Lymphadenitis [None]
  - Rash erythematous [None]
  - Rash papular [None]
  - Somnolence [None]
  - Panic attack [None]
  - Pruritus generalised [None]
  - Dry skin [None]
  - Lethargy [None]
  - Suicidal ideation [None]
